FAERS Safety Report 5892327-1 (Version None)
Quarter: 2008Q3

REPORT INFORMATION
  Report Type: 
  Country: None (occurrence: None)
  Receive Date: 20080923
  Receipt Date: 20080912
  Transmission Date: 20090109
  Serious: Yes (Other)
  Sender: FDA-Public Use
  Company Number: GB-RANBAXY-2008RR-18030

PATIENT
  Age: 69 Year
  Sex: Female
  Weight: 62.6 kg

DRUGS (4)
  1. LISINOPRIL [Suspect]
     Indication: HYPERTENSION
     Dosage: 10 MG, UNK
     Route: 048
     Dates: start: 20080715, end: 20080815
  2. BENDROFLUMETHIAZIDE [Concomitant]
     Indication: HYPERTENSION
     Dosage: 2.5 MG, UNK
     Route: 048
     Dates: start: 20040101
  3. CONJUGATED OESTROGENS [Concomitant]
     Indication: MENOPAUSAL SYMPTOMS
     Dosage: 625 UG, UNK
     Route: 048
     Dates: start: 19970101
  4. OMEPRAZOLE [Concomitant]
     Indication: DYSPEPSIA
     Dosage: 20 MG, UNK
     Route: 048
     Dates: start: 19960101

REACTIONS (4)
  - HYPOTENSION [None]
  - LOSS OF CONSCIOUSNESS [None]
  - MALAISE [None]
  - SYNCOPE [None]
